FAERS Safety Report 5546524-5 (Version None)
Quarter: 2007Q4

REPORT INFORMATION
  Report Type: 
  Country: None (occurrence: None)
  Receive Date: 20071211
  Receipt Date: 20070211
  Transmission Date: 20080405
  Serious: No
  Sender: FDA-Public Use
  Company Number: US-AMGEN-KDL210889

PATIENT
  Sex: Female

DRUGS (3)
  1. ENBREL [Suspect]
     Indication: RHEUMATOID ARTHRITIS
     Route: 058
     Dates: start: 20061201
  2. ARAVA [Concomitant]
     Dates: start: 20050101
  3. METHOTREXATE [Concomitant]
     Dates: start: 20050101

REACTIONS (8)
  - ASTHENIA [None]
  - DIZZINESS [None]
  - HYPOAESTHESIA [None]
  - HYPOAESTHESIA FACIAL [None]
  - NASOPHARYNGITIS [None]
  - PARAESTHESIA [None]
  - RASH PRURITIC [None]
  - WEIGHT INCREASED [None]
